FAERS Safety Report 23822214 (Version 1)
Quarter: 2024Q2

REPORT INFORMATION
  Report Type: Spontaneous
  Country: US (occurrence: US)
  Receive Date: 20240506
  Receipt Date: 20240506
  Transmission Date: 20240715
  Serious: No
  Sender: FDA-Public Use
  Company Number: US-CMP PHARMA-2023CMP00018

PATIENT
  Age: 62 Year
  Sex: Female
  Weight: 56.689 kg

DRUGS (4)
  1. TRIANEX [Suspect]
     Active Substance: TRIAMCINOLONE ACETONIDE
     Indication: Dermatitis atopic
     Dosage: 0.1 % CREAM, 2X/DAY FOR 14 DAYS [THEN PRN]
     Route: 061
     Dates: start: 20190210, end: 20190223
  2. TRIANEX [Suspect]
     Active Substance: TRIAMCINOLONE ACETONIDE
     Dosage: 0.1 % CREAM, [2X/DAY FOR 14 DAYS THEN] PRN
     Route: 061
     Dates: start: 20190224, end: 202305
  3. DUPIXENT [Concomitant]
     Active Substance: DUPILUMAB
  4. EUCRISA [Concomitant]
     Active Substance: CRISABOROLE

REACTIONS (2)
  - Drug ineffective [Recovered/Resolved]
  - Dermatitis atopic [Recovering/Resolving]

NARRATIVE: CASE EVENT DATE: 20190210
